FAERS Safety Report 8925273 (Version 2)
Quarter: 2012Q4

REPORT INFORMATION
  Report Type: 
  Country: US (occurrence: US)
  Receive Date: 20121126
  Receipt Date: 20121218
  Transmission Date: 20130627
  Serious: No
  Sender: FDA-Public Use
  Company Number: US-VERTEX PHARMACEUTICAL INC.-2012-024814

PATIENT
  Sex: Female

DRUGS (3)
  1. VX-950 (TELAPREVIR) [Suspect]
     Indication: HEPATITIS C
     Dosage: 750 mg, tid
     Route: 048
     Dates: start: 2012
  2. PEGASYS [Suspect]
     Indication: HEPATITIS C
     Dosage: 180 ?g, qw
     Route: 058
     Dates: start: 2012
  3. RIBAPAK [Suspect]
     Indication: HEPATITIS C
     Dosage: 1 DF, bid
     Route: 048
     Dates: start: 2012

REACTIONS (6)
  - Vaginal haemorrhage [Unknown]
  - Menstruation irregular [Unknown]
  - Fatigue [Unknown]
  - Haemorrhoids [Unknown]
  - Anal pruritus [Unknown]
  - Anorectal discomfort [Unknown]
